FAERS Safety Report 7559016-9 (Version None)
Quarter: 2011Q2

REPORT INFORMATION
  Report Type: 
  Country: None (occurrence: None)
  Receive Date: 20110621
  Receipt Date: 20110615
  Transmission Date: 20111010
  Serious: No
  Sender: FDA-Public Use
  Company Number: US-PFIZER INC-2011132488

PATIENT

DRUGS (1)
  1. XANAX XR [Suspect]
     Dosage: UNK

REACTIONS (1)
  - MEDICATION RESIDUE [None]
